FAERS Safety Report 25115766 (Version 1)
Quarter: 2025Q1

REPORT INFORMATION
  Report Type: Spontaneous
  Country: US (occurrence: US)
  Receive Date: 20250325
  Receipt Date: 20250325
  Transmission Date: 20250409
  Serious: No
  Sender: BOEHRINGER INGELHEIM
  Company Number: US-Komodo Health-a23aa000006U56rAAC

PATIENT
  Sex: Female

DRUGS (1)
  1. CYLTEZO [Suspect]
     Active Substance: ADALIMUMAB-ADBM
     Indication: Product used for unknown indication

REACTIONS (2)
  - Infusion site haemorrhage [Unknown]
  - Device malfunction [Unknown]

NARRATIVE: CASE EVENT DATE: 20250320
